FAERS Safety Report 8168581-2 (Version None)
Quarter: 2012Q1

REPORT INFORMATION
  Report Type: 
  Country: None (occurrence: None)
  Receive Date: 20120227
  Receipt Date: 20120221
  Transmission Date: 20120608
  Serious: Yes (Death, Other)
  Sender: FDA-Public Use
  Company Number: US-BAYER-200940309NA

PATIENT
  Age: 76 Year
  Sex: Male
  Weight: 89.2 kg

DRUGS (16)
  1. NEPHROCAPS [Concomitant]
     Dosage: UNK UNK, QD
  2. FOLTX [CYANOCOBALAMIN,FOLIC ACID,PYRIDOXINE] [Concomitant]
     Dosage: UNK UNK, QD
  3. REGLAN [Concomitant]
     Dosage: 5 MG, TID
  4. PEPCID [Concomitant]
  5. COREG [Concomitant]
     Dosage: 6.25 MG, BID
     Route: 048
  6. PROTAMINE SULFATE [Concomitant]
  7. NITROGLYCERIN [Concomitant]
  8. RENAGEL [Concomitant]
     Dosage: 800 MG, TID
  9. LEVAQUIN [Concomitant]
     Dosage: 250 MG/ ONE EVERY 48 HOURS
  10. EPOGEN [Concomitant]
     Dosage: 10,000 UNITS TUESDAY, THURSDAY, SATURDAY
     Route: 058
  11. PROCRIT [Concomitant]
  12. TRASYLOL [Suspect]
     Indication: CORONARY ARTERY BYPASS
     Dosage: UNK
     Route: 042
     Dates: start: 20031231
  13. AMIODARONE HCL [Concomitant]
     Dosage: 200 MG, QD
  14. CORDARONE [Concomitant]
     Dosage: 200 MG, QD
  15. INSULIN [Concomitant]
     Dosage: 20 UNITS/MORNING
  16. AUGMENTIN '125' [Concomitant]
     Dosage: 875 MG, BID

REACTIONS (13)
  - MULTI-ORGAN FAILURE [None]
  - ANXIETY [None]
  - UNEVALUABLE EVENT [None]
  - PAIN [None]
  - RENAL IMPAIRMENT [None]
  - RENAL INJURY [None]
  - DEATH [None]
  - RENAL FAILURE [None]
  - INJURY [None]
  - FEAR [None]
  - ANHEDONIA [None]
  - EMOTIONAL DISTRESS [None]
  - STRESS [None]
